FAERS Safety Report 6981539-1 (Version None)
Quarter: 2010Q3

REPORT INFORMATION
  Report Type: 
  Country: None (occurrence: None)
  Receive Date: 20100914
  Receipt Date: 20100910
  Transmission Date: 20110219
  Serious: Yes (Hospitalization, Disabling)
  Sender: FDA-Public Use
  Company Number: IN-EISAI INC.-E2090-01224-CLI-IN

PATIENT
  Sex: Male
  Weight: 55 kg

DRUGS (3)
  1. E2090/CARBAMAZEPINE [Suspect]
     Indication: EPILEPSY
     Dosage: DOUBLE BLIND
     Route: 048
     Dates: start: 20090717
  2. PHENYTOIN [Suspect]
     Route: 048
     Dates: start: 20100624, end: 20100705
  3. PHENYTOIN [Suspect]
     Dosage: 100 MG HS
     Route: 048
     Dates: start: 20100705

REACTIONS (2)
  - ATAXIA [None]
  - SOMNOLENCE [None]
